FAERS Safety Report 15617034 (Version 2)
Quarter: 2018Q4

REPORT INFORMATION
  Report Type: Spontaneous
  Country: US (occurrence: US)
  Receive Date: 20181114
  Receipt Date: 20181116
  Transmission Date: 20190205
  Serious: Yes (Other)
  Sender: FDA-Public Use
  Company Number: US-PFIZER INC-2018454101

PATIENT
  Age: 76 Year
  Sex: Female
  Weight: 56.7 kg

DRUGS (3)
  1. NEURONTIN [Suspect]
     Active Substance: GABAPENTIN
     Dosage: UNK
     Dates: start: 2000
  2. NEURONTIN [Suspect]
     Active Substance: GABAPENTIN
     Indication: SCIATIC NERVE INJURY
     Dosage: 200 MG, DAILY
  3. NEURONTIN [Suspect]
     Active Substance: GABAPENTIN
     Dosage: 300 MG, DAILY

REACTIONS (5)
  - Heart rate increased [Unknown]
  - Product use in unapproved indication [Unknown]
  - Tremor [Unknown]
  - Extrasystoles [Unknown]
  - Renal impairment [Unknown]
